FAERS Safety Report 10103603 (Version 3)
Quarter: 2014Q3

REPORT INFORMATION
  Report Type: Spontaneous
  Country: US (occurrence: US)
  Receive Date: 20140424
  Receipt Date: 20140730
  Transmission Date: 20150326
  Serious: Yes (Other)
  Sender: FDA-Public Use
  Company Number: CHPA2014US005631

PATIENT
  Age: 59 Year
  Sex: Female

DRUGS (1)
  1. PRIVATE LABEL STEP 2 14MG ACCT UNKNOWN [Suspect]
     Active Substance: NICOTINE
     Indication: SMOKING CESSATION THERAPY
     Dosage: 14 MG, UNK
     Dates: start: 20140326, end: 20140421

REACTIONS (4)
  - Fungal infection [Recovered/Resolved]
  - Weight decreased [Unknown]
  - Sinus disorder [Recovering/Resolving]
  - Hypoacusis [Recovering/Resolving]

NARRATIVE: CASE EVENT DATE: 20140414
